FAERS Safety Report 4277785-0 (Version None)
Quarter: 2004Q1

REPORT INFORMATION
  Report Type: 
  Country: None (occurrence: None)
  Receive Date: 20040121
  Receipt Date: 20030307
  Transmission Date: 20041129
  Serious: Yes (Death)
  Sender: FDA-Public Use
  Company Number: 2003-02-2460

PATIENT
  Age: 36 Year
  Sex: Male
  Weight: 72 kg

DRUGS (4)
  1. SUBUTEX [Suspect]
     Indication: DRUG DEPENDENCE
     Dosage: 12 MG QD
     Route: 048
     Dates: start: 20010505, end: 20011127
  2. OPIATE AND OPIOID ANALGESIC (NOS) [Suspect]
  3. ALCOHOL [Suspect]
  4. HEROIN [Concomitant]

REACTIONS (2)
  - COMPLETED SUICIDE [None]
  - DRUG SCREEN POSITIVE [None]
